FAERS Safety Report 7205713-4 (Version None)
Quarter: 2010Q4

REPORT INFORMATION
  Report Type: 
  Country: None (occurrence: None)
  Receive Date: 20101231
  Receipt Date: 20101220
  Transmission Date: 20110411
  Serious: Yes (Hospitalization)
  Sender: FDA-Public Use
  Company Number: US-ACTELION-A-US2009-23451

PATIENT

DRUGS (6)
  1. BOSENTAN TABLET UNKNOWN US MG [Suspect]
     Indication: PULMONARY ARTERIAL HYPERTENSION
     Dosage: UNK
     Route: 048
     Dates: start: 20091124
  2. BOSENTAN TABLET UNKNOWN US MG [Suspect]
     Dosage: UNK
     Route: 048
     Dates: start: 20081201
  3. REVATIO [Concomitant]
  4. CALCIUM CHANNEL BLOCKERS [Concomitant]
  5. COUMADIN [Concomitant]
  6. REMODULIN [Concomitant]

REACTIONS (9)
  - DEVICE RELATED INFECTION [None]
  - DYSPNOEA [None]
  - INJECTION SITE INFECTION [None]
  - MALAISE [None]
  - PULMONARY HYPERTENSION [None]
  - PYREXIA [None]
  - SEPSIS [None]
  - STAPHYLOCOCCAL INFECTION [None]
  - STAPHYLOCOCCAL SEPSIS [None]
